FAERS Safety Report 4557290-4 (Version None)
Quarter: 2005Q1

REPORT INFORMATION
  Report Type: 
  Country: None (occurrence: None)
  Receive Date: 20050118
  Receipt Date: 20050105
  Transmission Date: 20050727
  Serious: Yes (Hospitalization)
  Sender: FDA-Public Use
  Company Number: DEU-2005-0001206

PATIENT
  Sex: Male

DRUGS (1)
  1. OXYCODONE HCL [Suspect]
     Indication: ARTHRALGIA
     Dosage: 40 MG BID ORAL
     Route: 048
     Dates: end: 20041217

REACTIONS (5)
  - ANXIETY [None]
  - ERYTHEMA [None]
  - PRURITUS [None]
  - TOOTH DISORDER [None]
  - TOOTHACHE [None]
